FAERS Safety Report 5649071-5 (Version None)
Quarter: 2008Q1

REPORT INFORMATION
  Report Type: 
  Country: None (occurrence: None)
  Receive Date: 20080304
  Receipt Date: 20080226
  Transmission Date: 20080703
  Serious: Yes (Hospitalization, Other)
  Sender: FDA-Public Use
  Company Number: GB-TEVA-168193ISR

PATIENT
  Age: 55 Year
  Sex: Female

DRUGS (4)
  1. FUROSEMIDE [Suspect]
     Route: 048
     Dates: start: 20080104, end: 20080205
  2. SPIRONOLACTONE [Suspect]
     Route: 048
     Dates: start: 20080124, end: 20080205
  3. TIGECYCLINE [Suspect]
     Route: 042
     Dates: start: 20080128, end: 20080204
  4. VANCOMYCIN [Suspect]
     Route: 042
     Dates: start: 20080128, end: 20080204

REACTIONS (2)
  - EOSINOPHIL COUNT INCREASED [None]
  - RASH MACULAR [None]
